FAERS Safety Report 4887943-X (Version None)
Quarter: 2006Q1

REPORT INFORMATION
  Report Type: 
  Country: None (occurrence: None)
  Receive Date: 20060123
  Receipt Date: 20051005
  Transmission Date: 20060701
  Serious: Yes (Other)
  Sender: FDA-Public Use
  Company Number: US-MERCK-0510USA03422

PATIENT
  Age: 69 Year
  Sex: Female

DRUGS (23)
  1. VIOXX [Suspect]
     Indication: ARTHRITIS
     Route: 048
     Dates: start: 20000801, end: 20040901
  2. NEXIUM [Concomitant]
     Route: 065
  3. FLONASE [Concomitant]
     Route: 065
  4. LAMISIL [Concomitant]
     Route: 065
  5. MIGRAZONE [Concomitant]
     Route: 065
  6. ZITHROMAX [Concomitant]
     Route: 065
  7. NEURONTIN [Concomitant]
     Route: 065
  8. CEPHALEXIN [Concomitant]
     Route: 065
  9. FLUOCINONIDE [Concomitant]
     Route: 065
  10. ALREX [Concomitant]
     Route: 065
  11. AMOXIL [Concomitant]
     Route: 065
  12. [THERAPY UNSPECIFIED] [Concomitant]
     Route: 065
  13. NABUMETONE [Concomitant]
     Route: 065
  14. TRAMADOL HYDROCHLORIDE [Concomitant]
     Route: 065
  15. ALBUTEROL [Concomitant]
     Route: 065
  16. LEVAQUIN [Concomitant]
     Route: 065
  17. METHYLPREDNISOLONE [Concomitant]
     Route: 065
  18. TERCONAZOLE [Concomitant]
     Route: 065
  19. CARMOL (UREA) [Concomitant]
     Route: 065
  20. MYTUSSIN [Concomitant]
     Route: 065
  21. CELEBREX [Concomitant]
     Route: 065
  22. SYNTHROID [Concomitant]
     Route: 065
  23. LIPITOR [Concomitant]
     Route: 065

REACTIONS (8)
  - GASTROOESOPHAGEAL REFLUX DISEASE [None]
  - GRAVITATIONAL OEDEMA [None]
  - INTERVERTEBRAL DISC DEGENERATION [None]
  - IRON DEFICIENCY ANAEMIA [None]
  - ISCHAEMIC STROKE [None]
  - PAIN IN EXTREMITY [None]
  - TRANSIENT ISCHAEMIC ATTACK [None]
  - VARICOSE VEIN [None]
